FAERS Safety Report 6361791-6 (Version None)
Quarter: 2009Q3

REPORT INFORMATION
  Report Type: 
  Country: None (occurrence: None)
  Receive Date: 20090918
  Receipt Date: 20090911
  Transmission Date: 20100115
  Serious: Yes (Other)
  Sender: FDA-Public Use
  Company Number: CA-JNJFOC-20090905075

PATIENT
  Age: 37 Year
  Sex: Male

DRUGS (3)
  1. TYLENOL W/ CODEINE NO. 1 [Suspect]
     Indication: BACK PAIN
     Route: 065
  2. TYLENOL W/ CODEINE NO. 3 [Suspect]
     Indication: BACK PAIN
     Route: 065
  3. ACETAMINOPHEN/CHLORZOXAZONE [Suspect]
     Indication: BACK PAIN
     Route: 065

REACTIONS (2)
  - DEAFNESS UNILATERAL [None]
  - OVERDOSE [None]
